FAERS Safety Report 12228291 (Version 1)
Quarter: 2016Q1

REPORT INFORMATION
  Report Type: Spontaneous
  Country: US (occurrence: None)
  Receive Date: 20160330
  Receipt Date: 20160330
  Transmission Date: 20160526
  Serious: Yes (Hospitalization)
  Sender: FDA-Public Use
  Company Number: None

PATIENT
  Age: 56 Year
  Sex: Male
  Weight: 91 kg

DRUGS (1)
  1. DOXEPIN HYDROCHLORIDE. [Suspect]
     Active Substance: DOXEPIN HYDROCHLORIDE
     Dates: end: 20160312

REACTIONS (4)
  - Gastrointestinal stoma complication [None]
  - Mucosal inflammation [None]
  - Infection [None]
  - Radiation injury [None]

NARRATIVE: CASE EVENT DATE: 20160312
